FAERS Safety Report 25041443 (Version 1)
Quarter: 2025Q1

REPORT INFORMATION
  Report Type: Spontaneous
  Country: FR (occurrence: None)
  Receive Date: 20250305
  Receipt Date: 20250305
  Transmission Date: 20250408
  Serious: Yes (Hospitalization)
  Sender: ORION
  Company Number: None

PATIENT
  Age: 92 Year
  Sex: Female
  Weight: 63 kg

DRUGS (7)
  1. METHOTREXATE [Interacting]
     Active Substance: METHOTREXATE
     Indication: Rheumatoid arthritis
     Dosage: 1.5 TABLETS ONCE A WEEK
     Dates: start: 1960, end: 20240412
  2. ACETAMINOPHEN [Interacting]
     Active Substance: ACETAMINOPHEN
     Indication: Spinal fracture
     Dosage: 500 MG THREE TIMES A DAY
     Dates: start: 202404
  3. FOLIC ACID [Concomitant]
     Active Substance: FOLIC ACID
  4. CODEINE [Concomitant]
     Active Substance: CODEINE
     Indication: Spinal fracture
     Dosage: 500/30 MG
  5. PREDNISONE [Concomitant]
     Active Substance: PREDNISONE
  6. POLYETHYLENE GLYCOL 4000 [Concomitant]
     Active Substance: POLYETHYLENE GLYCOL 4000
  7. CHOLECALCIFEROL [Concomitant]
     Active Substance: CHOLECALCIFEROL

REACTIONS (2)
  - Drug interaction [Unknown]
  - Hepatic cytolysis [Recovering/Resolving]

NARRATIVE: CASE EVENT DATE: 20240410
